FAERS Safety Report 10686888 (Version 1)
Quarter: 2015Q1

REPORT INFORMATION
  Report Type: Spontaneous
  Country: US (occurrence: US)
  Receive Date: 20150102
  Receipt Date: 20150102
  Transmission Date: 20150720
  Serious: Yes (Hospitalization)
  Sender: FDA-Public Use
  Company Number: US-ROCHE-1515290

PATIENT
  Age: 67 Year
  Sex: Female

DRUGS (1)
  1. TAMIFLU [Suspect]
     Active Substance: OSELTAMIVIR PHOSPHATE
     Indication: INFLUENZA
     Route: 065
     Dates: start: 20141224, end: 20141226

REACTIONS (5)
  - Protein urine present [Unknown]
  - Memory impairment [Recovering/Resolving]
  - Repetitive speech [Recovering/Resolving]
  - Confusional state [Unknown]
  - Sinusitis [Unknown]

NARRATIVE: CASE EVENT DATE: 20141228
